FAERS Safety Report 5083401-0 (Version None)
Quarter: 2006Q3

REPORT INFORMATION
  Report Type: 
  Country: None (occurrence: None)
  Receive Date: 20060816
  Receipt Date: 20060816
  Transmission Date: 20061208
  Serious: Yes (Hospitalization)
  Sender: FDA-Public Use
  Company Number: None

PATIENT
  Age: 46 Year
  Sex: Female
  Weight: 60.782 kg

DRUGS (1)
  1. HUMIRA [Suspect]
     Indication: RHEUMATOID ARTHRITIS
     Dosage: 40MG  EVERY 2 WEEKS  SQ
     Route: 058
     Dates: start: 20060125, end: 20060515

REACTIONS (5)
  - ARTHRITIS INFECTIVE [None]
  - DEVICE RELATED INFECTION [None]
  - HIP ARTHROPLASTY [None]
  - POSTOPERATIVE INFECTION [None]
  - STAPHYLOCOCCAL INFECTION [None]
